FAERS Safety Report 8261188-8 (Version None)
Quarter: 2012Q2

REPORT INFORMATION
  Report Type: 
  Country: None (occurrence: None)
  Receive Date: 20120405
  Receipt Date: 20120328
  Transmission Date: 20120825
  Serious: Yes (Hospitalization)
  Sender: FDA-Public Use
  Company Number: DE-JNJFOC-20120105153

PATIENT
  Age: 17 Year
  Sex: Male

DRUGS (2)
  1. CONCERTA [Suspect]
     Indication: PRODUCT USED FOR UNKNOWN INDICATION
     Route: 048
  2. CONCERTA [Suspect]
     Route: 048

REACTIONS (9)
  - VIRAL INFECTION [None]
  - COELIAC DISEASE [None]
  - NAUSEA [None]
  - VOMITING [None]
  - ABDOMINAL PAIN UPPER [None]
  - DIARRHOEA [None]
  - FATIGUE [None]
  - WITHDRAWAL SYNDROME [None]
  - WEIGHT DECREASED [None]
